FAERS Safety Report 5525678-0 (Version None)
Quarter: 2007Q4

REPORT INFORMATION
  Report Type: 
  Country: None (occurrence: None)
  Receive Date: 20071120
  Receipt Date: 20071120
  Transmission Date: 20080405
  Serious: Yes (Other)
  Sender: FDA-Public Use
  Company Number: None

PATIENT
  Age: 48 Year

DRUGS (1)
  1. COPAXONE [Suspect]
     Indication: MULTIPLE SCLEROSIS
     Dosage: COPAXONE 20 MG DAILY SQ
     Route: 058
     Dates: start: 20070720, end: 20071118

REACTIONS (3)
  - DYSPNOEA [None]
  - HOT FLUSH [None]
  - MUSCLE SPASMS [None]
